FAERS Safety Report 12506683 (Version 1)
Quarter: 2016Q2

REPORT INFORMATION
  Report Type: Spontaneous
  Country: US (occurrence: US)
  Receive Date: 20160628
  Receipt Date: 20160628
  Transmission Date: 20160815
  Serious: No
  Sender: FDA-Public Use
  Company Number: US-BRACCO-013015

PATIENT
  Age: 48 Year
  Sex: Female
  Weight: 64 kg

DRUGS (9)
  1. DELTASONE [Concomitant]
     Active Substance: PREDNISONE
  2. KLONOPIN [Concomitant]
     Active Substance: CLONAZEPAM
  3. MULTIHANCE [Suspect]
     Active Substance: GADOBENATE DIMEGLUMINE
     Indication: NUCLEAR MAGNETIC RESONANCE IMAGING
     Route: 042
     Dates: start: 20151215, end: 20151215
  4. TOPAMAX [Concomitant]
     Active Substance: TOPIRAMATE
  5. PHENERGAN [Concomitant]
     Active Substance: PROMETHAZINE HYDROCHLORIDE
  6. SEROQUEL [Concomitant]
     Active Substance: QUETIAPINE FUMARATE
  7. ORUDIS [Concomitant]
     Active Substance: KETOPROFEN
  8. NORVASC [Concomitant]
     Active Substance: AMLODIPINE BESYLATE
  9. CYMBALTA [Concomitant]
     Active Substance: DULOXETINE HYDROCHLORIDE

REACTIONS (1)
  - Anxiety [Recovered/Resolved]

NARRATIVE: CASE EVENT DATE: 20151215
